FAERS Safety Report 10401778 (Version 6)
Quarter: 2015Q1

REPORT INFORMATION
  Report Type: Spontaneous
  Country: FR (occurrence: FR)
  Receive Date: 20140822
  Receipt Date: 20150309
  Transmission Date: 20150720
  Serious: Yes (Hospitalization, Disabling, Other)
  Sender: FDA-Public Use
  Company Number: FR-MERCK-1311FRA009141

PATIENT
  Sex: Female
  Weight: 91 kg

DRUGS (8)
  1. SOLUPRED [Concomitant]
     Active Substance: PREDNISOLONE
  2. NASACORT [Concomitant]
     Active Substance: TRIAMCINOLONE ACETONIDE
     Dosage: 1 DF, BID
  3. VARNOLINE [Concomitant]
     Active Substance: DESOGESTREL\ETHINYL ESTRADIOL
     Dosage: UNK
     Route: 048
     Dates: start: 20100920
  4. ORELOX [Concomitant]
     Active Substance: CEFPODOXIME
     Dosage: 1 DF, BID
  5. CETIRIZINE HYDROCHLORIDE. [Concomitant]
     Active Substance: CETIRIZINE HYDROCHLORIDE
     Dosage: 1 DF, QPM
  6. DAFALGAN [Concomitant]
     Active Substance: ACETAMINOPHEN
     Dosage: 500 MG, TID
     Route: 048
  7. VARNOLINE CONTINU [Suspect]
     Active Substance: DESOGESTREL\ETHINYL ESTRADIOL
     Dosage: 1 DF, QD
     Route: 048
     Dates: start: 20100920, end: 20111120
  8. INFLUENZA VIRUS VACCINE (UNSPECIFIED) [Concomitant]
     Active Substance: INFLUENZA VIRUS VACCINE
     Dosage: UNK
     Dates: start: 20100920, end: 20100920

REACTIONS (29)
  - Conjunctivitis [Unknown]
  - Mouth ulceration [Unknown]
  - Fatigue [Unknown]
  - Tonsillitis [Unknown]
  - Cerebral venous thrombosis [Recovered/Resolved with Sequelae]
  - Anxiety [Unknown]
  - Loss of libido [Unknown]
  - Glomerulonephritis [Unknown]
  - Mood altered [Unknown]
  - Epilepsy [Not Recovered/Not Resolved]
  - Ear infection [Unknown]
  - Visual impairment [Unknown]
  - Cough [Unknown]
  - Speech disorder [Unknown]
  - Intervertebral disc disorder [Unknown]
  - Ear infection [Unknown]
  - Headache [Recovered/Resolved]
  - Haemorrhagic stroke [Recovered/Resolved with Sequelae]
  - Migraine with aura [Unknown]
  - Aphasia [Recovered/Resolved with Sequelae]
  - Nasopharyngitis [Unknown]
  - Pyrexia [Unknown]
  - Nasopharyngitis [Unknown]
  - Weight increased [Unknown]
  - Gastroenteritis [Unknown]
  - Depression [Unknown]
  - Asthenia [Unknown]
  - Arthralgia [Unknown]
  - Memory impairment [Unknown]

NARRATIVE: CASE EVENT DATE: 20100920
